FAERS Safety Report 9580821 (Version 1)
Quarter: 2013Q4

REPORT INFORMATION
  Report Type: Spontaneous
  Country: GR (occurrence: GR)
  Receive Date: 20131002
  Receipt Date: 20131002
  Transmission Date: 20140711
  Serious: Yes (Hospitalization)
  Sender: FDA-Public Use
  Company Number: GR-UCBSA-098776

PATIENT
  Age: 60 Year
  Sex: Female

DRUGS (3)
  1. VIMPAT [Suspect]
     Indication: EPILEPSY
     Route: 048
  2. KEPPRA [Concomitant]
     Indication: EPILEPSY
     Dosage: DAILY
     Route: 048
  3. ZONEGRAN [Concomitant]
     Indication: EPILEPSY
     Dosage: DAILY
     Route: 048

REACTIONS (3)
  - Bradycardia [Recovered/Resolved]
  - Syncope [Recovered/Resolved]
  - Overdose [Unknown]
